FAERS Safety Report 10125748 (Version 1)
Quarter: 2014Q2

REPORT INFORMATION
  Report Type: Spontaneous
  Country: US (occurrence: US)
  Receive Date: 20140425
  Receipt Date: 20140425
  Transmission Date: 20141212
  Serious: Yes (Other)
  Sender: FDA-Public Use
  Company Number: US-TEVA-477937USA

PATIENT
  Age: 46 Year
  Sex: Female
  Weight: 74 kg

DRUGS (1)
  1. PARAGARD 380A [Suspect]
     Indication: POST COITAL CONTRACEPTION
     Route: 015
     Dates: start: 20071220, end: 20140327

REACTIONS (8)
  - Uterine polyp [Recovered/Resolved]
  - Device dislocation [Recovered/Resolved]
  - Embedded device [Unknown]
  - Device breakage [Not Recovered/Not Resolved]
  - Uterine leiomyoma [Unknown]
  - Vaginal haemorrhage [Recovered/Resolved]
  - Metrorrhagia [Recovered/Resolved]
  - Back pain [Recovered/Resolved]
